FAERS Safety Report 8971053 (Version 1)
Quarter: 2012Q4

REPORT INFORMATION
  Report Type: 
  Country: US (occurrence: US)
  Receive Date: 20121218
  Receipt Date: 20121218
  Transmission Date: 20130627
  Serious: No
  Sender: FDA-Public Use
  Company Number: US-BRISTOL-MYERS SQUIBB COMPANY-16480568

PATIENT
  Age: 63 Year
  Sex: Female
  Weight: 84.35 kg

DRUGS (8)
  1. ABILIFY [Suspect]
     Indication: STRESS
  2. ALPRAZOLAM [Suspect]
     Indication: ANXIETY
     Dosage: 1 year its ongoing
Trade name:Dava
     Route: 048
  3. VESICARE [Concomitant]
  4. SYNTHROID [Concomitant]
     Indication: HYPOTHYROIDISM
  5. CYTOMEL [Concomitant]
     Indication: HYPOTHYROIDISM
  6. PROTONIX [Concomitant]
  7. ZOLPIDEM [Concomitant]
     Indication: INSOMNIA
  8. VITAMINS [Concomitant]

REACTIONS (1)
  - Drug ineffective [Unknown]
